FAERS Safety Report 9211456 (Version 2)
Quarter: 2013Q2

REPORT INFORMATION
  Report Type: Spontaneous
  Country: US (occurrence: US)
  Receive Date: 20130404
  Receipt Date: 20130506
  Transmission Date: 20140414
  Serious: No
  Sender: FDA-Public Use
  Company Number: US-AMGEN-USASP2013016463

PATIENT
  Age: 69 Year
  Sex: Female
  Weight: 64.4 kg

DRUGS (4)
  1. ENBREL [Suspect]
     Indication: RHEUMATOID ARTHRITIS
     Dosage: 50 MG, QWK
     Route: 058
     Dates: start: 20120817
  2. METHOTREXATE [Concomitant]
     Indication: ARTHRITIS
     Dosage: 5 UNK, QWK
     Route: 048
  3. FOLIC ACID [Concomitant]
     Indication: ARTHRITIS
     Dosage: 1 MG, QD
     Route: 048
  4. ALEVE [Concomitant]
     Indication: ARTHRITIS
     Dosage: 220 MG, TID
     Route: 048

REACTIONS (3)
  - Rash papular [Not Recovered/Not Resolved]
  - Rash pruritic [Not Recovered/Not Resolved]
  - Herpes zoster [Recovering/Resolving]
